FAERS Safety Report 4843860-2 (Version None)
Quarter: 2005Q4

REPORT INFORMATION
  Report Type: 
  Country: None (occurrence: None)
  Receive Date: 20051130
  Receipt Date: 20051130
  Transmission Date: 20060501
  Serious: Yes (Death, Hospitalization)
  Sender: FDA-Public Use
  Company Number: None

PATIENT
  Age: 50 Year
  Sex: Female
  Weight: 40.8 kg

DRUGS (12)
  1. INHALED TREPROSTINIL [Suspect]
     Indication: PULMONARY HYPERTENSION
     Dosage: 45 MCG IN 4/DAY
     Dates: start: 20050330, end: 20051031
  2. CAPTOPRIL [Concomitant]
  3. BUMEX [Concomitant]
  4. NITROPRUSSIDE DRIP [Concomitant]
  5. VANCOMYCIN [Concomitant]
  6. FENTANYL DRIP [Concomitant]
  7. PROPOFOL [Concomitant]
  8. IV FLAGYL [Concomitant]
  9. STRESS DOSE STEROIDS [Concomitant]
  10. DOPAMINE DRIP [Concomitant]
  11. FLOLAN DRIP [Concomitant]
  12. INSULIN DRIP [Concomitant]

REACTIONS (8)
  - CARDIAC ARREST [None]
  - CENTRAL LINE INFECTION [None]
  - DISEASE PROGRESSION [None]
  - HYPOXIA [None]
  - INFECTION [None]
  - PULMONARY HYPERTENSION [None]
  - RESPIRATORY FAILURE [None]
  - STAPHYLOCOCCAL INFECTION [None]
